FAERS Safety Report 4805140-0 (Version None)
Quarter: 2005Q4

REPORT INFORMATION
  Report Type: 
  Country: None (occurrence: None)
  Receive Date: 20051017
  Receipt Date: 20051003
  Transmission Date: 20060501
  Serious: Yes (Hospitalization)
  Sender: FDA-Public Use
  Company Number: 2005BI013946

PATIENT
  Sex: Female

DRUGS (14)
  1. AVONEX LYOPHILIZED [Suspect]
     Indication: MULTIPLE SCLEROSIS
     Dosage: 30 UG; IM
     Route: 030
     Dates: start: 19961001
  2. AVONEX [Suspect]
     Indication: MULTIPLE SCLEROSIS
     Dosage: 30 UG; IM
     Route: 030
  3. BACLOFEN [Concomitant]
  4. LEVSINEX [Concomitant]
  5. KLOR-CON [Concomitant]
  6. ZOCOR [Concomitant]
  7. ZANAFLEX [Concomitant]
  8. ZESTRIL [Concomitant]
  9. DEMADEX [Concomitant]
  10. VITAMINS [Concomitant]
  11. DRISDOL [Concomitant]
  12. CALCIUM CARBONATE [Concomitant]
  13. DITROPAN [Concomitant]
  14. CLARITIN-D [Concomitant]

REACTIONS (1)
  - CONVULSION [None]
